FAERS Safety Report 19450488 (Version 7)
Quarter: 2022Q3

REPORT INFORMATION
  Report Type: Report from Study
  Country: CO (occurrence: CO)
  Receive Date: 20210622
  Receipt Date: 20220721
  Transmission Date: 20221026
  Serious: Yes (Other)
  Sender: FDA-Public Use
  Company Number: CO-TAKEDA-2021TUS006255

PATIENT
  Age: 30 Year
  Sex: Male
  Weight: 97.959 kg

DRUGS (4)
  1. ICATIBANT [Suspect]
     Active Substance: ICATIBANT ACETATE
     Indication: Hereditary angioedema
     Dosage: 30 MILLIGRAM, Q6HR
     Route: 058
     Dates: start: 20170804
  2. ICATIBANT [Suspect]
     Active Substance: ICATIBANT ACETATE
     Indication: Hereditary angioedema
     Dosage: 30 MILLIGRAM, Q6HR
     Route: 058
     Dates: start: 20170804
  3. TRANEXAMIC ACID [Concomitant]
     Active Substance: TRANEXAMIC ACID
     Dosage: UNK
  4. DANAZOL [Concomitant]
     Active Substance: DANAZOL
     Dosage: UNK

REACTIONS (3)
  - COVID-19 [Recovered/Resolved]
  - Weight increased [Unknown]
  - Body height abnormal [Unknown]

NARRATIVE: CASE EVENT DATE: 20210608
